FAERS Safety Report 6177856-8 (Version None)
Quarter: 2009Q2

REPORT INFORMATION
  Report Type: 
  Country: None (occurrence: None)
  Receive Date: 20090504
  Receipt Date: 20090424
  Transmission Date: 20091009
  Serious: Yes (Hospitalization, Other)
  Sender: FDA-Public Use
  Company Number: US-ABBOTT-09P-163-0570041-00

PATIENT
  Sex: Female
  Weight: 120.76 kg

DRUGS (1)
  1. NIASPAN [Suspect]
     Indication: DRUG USE FOR UNKNOWN INDICATION

REACTIONS (12)
  - ABDOMINAL PAIN [None]
  - ABDOMINAL PAIN UPPER [None]
  - ATELECTASIS [None]
  - HEPATIC CYST [None]
  - HEPATOMEGALY [None]
  - HYPOXIA [None]
  - NEPHROLITHIASIS [None]
  - OEDEMA [None]
  - PANCREATIC DISORDER [None]
  - PANCREATITIS ACUTE [None]
  - PLEURAL EFFUSION [None]
  - PULMONARY EMBOLISM [None]
